FAERS Safety Report 16798456 (Version 4)
Quarter: 2021Q2

REPORT INFORMATION
  Report Type: Spontaneous
  Country: US (occurrence: US)
  Receive Date: 20190912
  Receipt Date: 20210525
  Transmission Date: 20210716
  Serious: No
  Sender: FDA-Public Use
  Company Number: US-ALLERGAN-1929880US

PATIENT
  Age: 62 Year
  Sex: Male
  Weight: 95.24 kg

DRUGS (6)
  1. PREDNISONE. [Suspect]
     Active Substance: PREDNISONE
     Indication: POSTOPERATIVE CARE
     Dosage: UNK
     Route: 047
     Dates: start: 201907, end: 201907
  2. PREDNISONE. [Suspect]
     Active Substance: PREDNISONE
     Dosage: UNK
     Route: 047
     Dates: start: 201906, end: 201907
  3. KETOROLAC TROMETHAMINE 0.5% [Suspect]
     Active Substance: KETOROLAC TROMETHAMINE
     Indication: POSTOPERATIVE CARE
     Dosage: 1 GTT, QID
     Route: 047
     Dates: start: 201907, end: 201907
  4. OFLOXACIN UNK [Suspect]
     Active Substance: OFLOXACIN
     Dosage: UNK
     Route: 047
     Dates: start: 201906, end: 201907
  5. KETOROLAC TROMETHAMINE 0.5% [Suspect]
     Active Substance: KETOROLAC TROMETHAMINE
     Dosage: 1 GTT, QID
     Route: 047
     Dates: start: 201906, end: 201907
  6. OFLOXACIN UNK [Suspect]
     Active Substance: OFLOXACIN
     Indication: POSTOPERATIVE CARE
     Dosage: UNK
     Route: 047
     Dates: start: 201907, end: 201907

REACTIONS (2)
  - Dry eye [Not Recovered/Not Resolved]
  - Swelling of eyelid [Not Recovered/Not Resolved]

NARRATIVE: CASE EVENT DATE: 201906
